FAERS Safety Report 11140141 (Version 4)
Quarter: 2017Q3

REPORT INFORMATION
  Report Type: Report from Study
  Country: None (occurrence: BR)
  Receive Date: 20150527
  Receipt Date: 20170829
  Transmission Date: 20171127
  Serious: Yes (Disabling, Other)
  Sender: FDA-Public Use
  Company Number: BR-ABBVIE-15K-020-1396480-00

PATIENT
  Age: 59 Year
  Sex: Female
  Weight: 54 kg

DRUGS (14)
  1. METHOTREXATE. [Concomitant]
     Active Substance: METHOTREXATE
     Indication: RHEUMATIC DISORDER
     Route: 048
     Dates: start: 1998
  2. MELOXICAM. [Concomitant]
     Active Substance: MELOXICAM
     Indication: PAIN
     Route: 048
     Dates: start: 1998
  3. PANTOPRAZOLE [Concomitant]
     Active Substance: PANTOPRAZOLE
     Indication: GASTRITIS
     Route: 048
  4. SODIUM ALENDRONATE [Concomitant]
     Indication: OSTEOPOROSIS
     Route: 048
     Dates: start: 2001
  5. TYLEX [Concomitant]
     Active Substance: ACETAMINOPHEN\CODEINE PHOSPHATE
     Indication: PAIN
     Route: 048
     Dates: start: 2006
  6. VITAMIN D [Concomitant]
     Active Substance: CHOLECALCIFEROL
     Indication: OSTEOPENIA
  7. CALCIUM [Concomitant]
     Active Substance: CALCIUM
     Indication: OSTEOPOROSIS
     Route: 048
     Dates: start: 2001
  8. HUMIRA [Suspect]
     Active Substance: ADALIMUMAB
     Indication: RHEUMATOID ARTHRITIS
     Route: 058
     Dates: start: 20140101
  9. AMITRIPTYLINE HYDROCHLORIDE. [Concomitant]
     Active Substance: AMITRIPTYLINE HYDROCHLORIDE
     Indication: GASTRITIS
     Route: 048
  10. CALCIUM [Concomitant]
     Active Substance: CALCIUM
     Indication: OSTEOPENIA
  11. SODIUM ALENDRONATE [Concomitant]
     Indication: OSTEOPENIA
  12. AMITRIPTYLINE HYDROCHLORIDE. [Concomitant]
     Active Substance: AMITRIPTYLINE HYDROCHLORIDE
     Indication: PROPHYLAXIS AGAINST GASTROINTESTINAL ULCER
  13. VITAMIN D [Concomitant]
     Active Substance: CHOLECALCIFEROL
     Indication: OSTEOPOROSIS
     Route: 048
     Dates: start: 2001
  14. DEFLAZACORT [Concomitant]
     Active Substance: DEFLAZACORT
     Indication: RHEUMATIC DISORDER
     Route: 048

REACTIONS (14)
  - Bone graft [Unknown]
  - Arthralgia [Unknown]
  - Neck pain [Recovered/Resolved]
  - Arthralgia [Recovered/Resolved]
  - Purulence [Recovered/Resolved]
  - Wound [Recovered/Resolved]
  - Hepatic enzyme abnormal [Unknown]
  - Musculoskeletal stiffness [Not Recovered/Not Resolved]
  - Localised infection [Unknown]
  - Patient-device incompatibility [Unknown]
  - Body height decreased [Unknown]
  - Post procedural haematoma [Recovered/Resolved]
  - Surgical failure [Unknown]
  - Post procedural infection [Not Recovered/Not Resolved]

NARRATIVE: CASE EVENT DATE: 201512
